FAERS Safety Report 6959640-8 (Version None)
Quarter: 2010Q3

REPORT INFORMATION
  Report Type: 
  Country: None (occurrence: None)
  Receive Date: 20100827
  Receipt Date: 20100816
  Transmission Date: 20110219
  Serious: Yes (Hospitalization)
  Sender: FDA-Public Use
  Company Number: ES-1183069

PATIENT
  Age: 82 Year
  Sex: Female

DRUGS (9)
  1. ELEBLOC (CARTEOLOL HYDROCHLORIDE) 1% OPHTHALMIC SOLUTION EYE DROPS, SO [Suspect]
     Dosage: OPHTHALMIC
     Route: 047
     Dates: start: 20100101, end: 20100417
  2. LUCENFAL (NICARDIPINE HYDROCHLORIDE) [Concomitant]
  3. PRANDIN [Concomitant]
  4. ZOLPIDEM TARTRATE [Concomitant]
  5. SIMVASTATINA (SIMVASTATIN) [Concomitant]
  6. DILUTOL (ENOXAPARIN SODIUM) [Concomitant]
  7. ASPIRIN [Concomitant]
  8. TRUSOPT [Concomitant]
  9. LEVEMIR [Concomitant]

REACTIONS (5)
  - ASTHENIA [None]
  - DIZZINESS [None]
  - HYPERGLYCAEMIA [None]
  - MUSCULAR WEAKNESS [None]
  - NODAL RHYTHM [None]
